FAERS Safety Report 10089203 (Version 1)
Quarter: 2014Q2

REPORT INFORMATION
  Report Type: Spontaneous
  Country: US (occurrence: None)
  Receive Date: 20140418
  Receipt Date: 20140418
  Transmission Date: 20141212
  Serious: Yes (Other)
  Sender: FDA-Public Use
  Company Number: None

PATIENT
  Age: 33 Year
  Sex: Female
  Weight: 63.5 kg

DRUGS (1)
  1. CLARAVIS [Suspect]
     Indication: ACNE
     Dosage: 1 PO QAM
     Route: 048
     Dates: start: 20140219, end: 20140417

REACTIONS (5)
  - Limb injury [None]
  - Avulsion fracture [None]
  - Meniscus injury [None]
  - Tibia fracture [None]
  - Foot fracture [None]
